FAERS Safety Report 14220867 (Version 2)
Quarter: 2017Q4

REPORT INFORMATION
  Report Type: Spontaneous
  Country: JP (occurrence: JP)
  Receive Date: 20171124
  Receipt Date: 20171221
  Transmission Date: 20180321
  Serious: Yes (Hospitalization)
  Sender: FDA-Public Use
  Company Number: JP-MALLINCKRODT-T201704617

PATIENT
  Age: 39 Year
  Sex: Female
  Weight: 48 kg

DRUGS (12)
  1. METHADONE [Suspect]
     Active Substance: METHADONE HYDROCHLORIDE
     Indication: CANCER PAIN
     Dosage: 15 MG (5 MG)
     Route: 048
     Dates: start: 20171010, end: 20171012
  2. METHADONE [Suspect]
     Active Substance: METHADONE HYDROCHLORIDE
     Dosage: 45MG (15MG)
     Route: 048
     Dates: start: 20171016, end: 20171017
  3. METHADONE [Suspect]
     Active Substance: METHADONE HYDROCHLORIDE
     Dosage: 60 MG (20MG)
     Route: 048
     Dates: start: 20171018, end: 20171102
  4. CELECOX [Concomitant]
     Active Substance: CELECOXIB
     Indication: PRODUCT USED FOR UNKNOWN INDICATION
     Dosage: 2 DF
     Route: 048
     Dates: start: 20171028
  5. FENTOS [Concomitant]
     Active Substance: FENTANYL
     Dosage: 16 MG
     Route: 062
     Dates: start: 20171103, end: 20171106
  6. FENTOS [Concomitant]
     Active Substance: FENTANYL
     Dosage: 20 MG
     Route: 062
     Dates: start: 20171106, end: 20171109
  7. METHADONE [Suspect]
     Active Substance: METHADONE HYDROCHLORIDE
     Dosage: 30 MG (10 MG)
     Route: 048
     Dates: start: 20171013, end: 20171016
  8. FENTOS [Concomitant]
     Active Substance: FENTANYL
     Indication: CANCER PAIN
     Dosage: 8 MG
     Route: 062
     Dates: start: 20171102, end: 20171103
  9. LYRICA [Concomitant]
     Active Substance: PREGABALIN
     Indication: PRODUCT USED FOR UNKNOWN INDICATION
     Dosage: 4 DF
     Route: 048
     Dates: start: 20170817
  10. SODIUM RABEPRAZOLE [Concomitant]
     Active Substance: RABEPRAZOLE SODIUM
     Indication: PRODUCT USED FOR UNKNOWN INDICATION
     Dosage: 1 DF
     Route: 048
     Dates: start: 20171028
  11. FENTOS [Concomitant]
     Active Substance: FENTANYL
     Dosage: 24 MG
     Route: 062
     Dates: start: 20171110
  12. ABSTRAL [Concomitant]
     Active Substance: FENTANYL CITRATE
     Indication: PRODUCT USED FOR UNKNOWN INDICATION
     Dosage: 800 MICROGRAM AS NEEDED
     Route: 060
     Dates: start: 20170817

REACTIONS (1)
  - Platelet count decreased [Recovering/Resolving]

NARRATIVE: CASE EVENT DATE: 20171030
